FAERS Safety Report 8622911 (Version 2)
Quarter: 2014Q1

REPORT INFORMATION
  Report Type: Spontaneous
  Country: US (occurrence: None)
  Receive Date: 20120323
  Receipt Date: 20130305
  Transmission Date: 20141002
  Serious: Yes (Hospitalization, Other)
  Sender: FDA-Public Use
  Company Number: 163-21880-11071932

PATIENT
  Age: 65 Year
  Sex: Female
  Weight: 66.68 kg

DRUGS (14)
  1. REVLIMID [Suspect]
     Indication: PLASMA CELL MYELOMA
     Route: 048
     Dates: start: 20090513, end: 20100809
  2. AREDIA [Concomitant]
  3. ZOFRAN (ONDANSETRON HYDROCHLORIDE) [Concomitant]
  4. NEUPOGEN (FILGRASTIM) [Concomitant]
  5. AZTREONAM [Concomitant]
  6. VANCOMYCIN [Concomitant]
  7. TOBRAMYCIN [Concomitant]
  8. ACYCLOVIR (ACICLOVIR) (ACICLOVIR) [Concomitant]
  9. ACETAMINOPHEN (PARACETAMOL) [Concomitant]
  10. DIPHENHYDRAMINE [Concomitant]
  11. G-CSF (GRANULOCYTE COLONY STIMULATING FACTOR) [Concomitant]
  12. FLUCONAZOLE [Concomitant]
  13. MAGIC MOUTH WASH (ALL OTHER THERAPEUTIC PRODUCTS) [Concomitant]
  14. BROAD SPECTRUM ANTIBIOTICS [Concomitant]

REACTIONS (6)
  - Pancytopenia [None]
  - Thrombocytopenia [None]
  - Oedema peripheral [None]
  - Full blood count decreased [None]
  - Red blood cell count decreased [None]
  - Diarrhoea [None]
